FAERS Safety Report 12936395 (Version 5)
Quarter: 2016Q4

REPORT INFORMATION
  Report Type: Spontaneous
  Country: JP (occurrence: JP)
  Receive Date: 20161114
  Receipt Date: 20161230
  Transmission Date: 20170207
  Serious: Yes (Hospitalization, Other)
  Sender: FDA-Public Use
  Company Number: JP-009507513-1611JPN006209

PATIENT
  Age: 90 Year
  Sex: Female

DRUGS (7)
  1. MOSAPRIDE CITRATE [Concomitant]
     Active Substance: MOSAPRIDE CITRATE
     Dosage: UNK
  2. LAXOBERON [Concomitant]
     Active Substance: SODIUM PICOSULFATE
     Dosage: UNK
  3. AMOBAN [Concomitant]
     Active Substance: ZOPICLONE
     Dosage: 7.5 MG, ONCE A DAY
     Dates: end: 201603
  4. BAYASPIRIN [Concomitant]
     Active Substance: ASPIRIN
     Dosage: UNK
  5. LUNESTA [Suspect]
     Active Substance: ESZOPICLONE
     Indication: PRODUCT USED FOR UNKNOWN INDICATION
     Dosage: 1 MG, ONCE A DAY, BEFORE BEDTIME
     Route: 048
     Dates: start: 201603
  6. GLACTIV [Suspect]
     Active Substance: SITAGLIPTIN
     Indication: TYPE 2 DIABETES MELLITUS
     Dosage: 25 MG, ONCE A DAY
     Route: 048
     Dates: end: 20160425
  7. SEIBULE [Concomitant]
     Active Substance: MIGLITOL
     Dosage: UNK

REACTIONS (4)
  - Fracture [Unknown]
  - Dyschezia [Unknown]
  - Constipation [Recovered/Resolved]
  - Vomiting [Unknown]

NARRATIVE: CASE EVENT DATE: 20160210
